FAERS Safety Report 7459501-4 (Version None)
Quarter: 2011Q2

REPORT INFORMATION
  Report Type: 
  Country: None (occurrence: None)
  Receive Date: 20110505
  Receipt Date: 20110427
  Transmission Date: 20111010
  Serious: Yes (Death, Other)
  Sender: FDA-Public Use
  Company Number: CA-GENZYME-THYM-1002439

PATIENT
  Age: 2 Year
  Sex: Female

DRUGS (12)
  1. METHYLPREDNISOLONE [Concomitant]
     Indication: PROPHYLAXIS AGAINST TRANSPLANT REJECTION
     Route: 042
  2. MYCOPHENOLATE MOFETIL [Concomitant]
     Indication: IMMUNOSUPPRESSION
  3. PENICILLIN [Concomitant]
     Indication: PRODUCT USED FOR UNKNOWN INDICATION
  4. PREDNISOLONE [Concomitant]
     Indication: IMMUNOSUPPRESSION
  5. ASPIRIN [Concomitant]
     Indication: PRODUCT USED FOR UNKNOWN INDICATION
  6. COTRIM [Concomitant]
     Indication: PRODUCT USED FOR UNKNOWN INDICATION
  7. THYMOGLOBULIN [Suspect]
     Indication: PROPHYLAXIS AGAINST TRANSPLANT REJECTION
     Route: 042
  8. FUROSEMID [Concomitant]
     Indication: PRODUCT USED FOR UNKNOWN INDICATION
  9. NOVO-SPIROZINE [Concomitant]
     Indication: PRODUCT USED FOR UNKNOWN INDICATION
  10. CYCLOSPORINE [Concomitant]
     Indication: IMMUNOSUPPRESSION
  11. RANITIDINE [Concomitant]
     Indication: PRODUCT USED FOR UNKNOWN INDICATION
  12. NYSTATIN [Concomitant]
     Indication: PRODUCT USED FOR UNKNOWN INDICATION

REACTIONS (5)
  - EOSINOPHILIA [None]
  - EOSINOPHILIC MYOCARDITIS [None]
  - WOUND INFECTION PSEUDOMONAS [None]
  - SUDDEN CARDIAC DEATH [None]
  - TRANSPLANT REJECTION [None]
